FAERS Safety Report 8430264-9 (Version None)
Quarter: 2012Q2

REPORT INFORMATION
  Report Type: 
  Country: None (occurrence: None)
  Receive Date: 20120606
  Receipt Date: 20120606
  Transmission Date: 20120825
  Serious: Yes (Other)
  Sender: FDA-Public Use
  Company Number: None

PATIENT
  Age: 77 Year
  Sex: Female

DRUGS (1)
  1. TIKOSYN [Suspect]
     Dosage: 500MCG BID PO
     Route: 048
     Dates: start: 20120201, end: 20120601

REACTIONS (2)
  - DYSGEUSIA [None]
  - SWOLLEN TONGUE [None]
